FAERS Safety Report 8156223-1 (Version None)
Quarter: 2012Q1

REPORT INFORMATION
  Report Type: 
  Country: None (occurrence: None)
  Receive Date: 20120222
  Receipt Date: 20120220
  Transmission Date: 20120608
  Serious: Yes (Other)
  Sender: FDA-Public Use
  Company Number: US-PFIZER INC-2012045065

PATIENT
  Sex: Male
  Weight: 70 kg

DRUGS (3)
  1. CHANTIX [Suspect]
     Indication: SMOKING CESSATION THERAPY
     Dosage: 0.5 MG, UNK
     Route: 048
     Dates: start: 20120214
  2. VIAGRA [Concomitant]
     Indication: SEXUAL DYSFUNCTION
     Dosage: 100 MG, DAILY
     Route: 048
  3. FLUTICASONE PROPIONATE [Concomitant]
     Indication: SINUS DISORDER
     Dosage: 50 MG, 2X/DAY

REACTIONS (3)
  - HOSTILITY [None]
  - AGITATION [None]
  - ABNORMAL BEHAVIOUR [None]
